FAERS Safety Report 4294676-X (Version None)
Quarter: 2004Q1

REPORT INFORMATION
  Report Type: 
  Country: None (occurrence: None)
  Receive Date: 20040213
  Receipt Date: 20040203
  Transmission Date: 20041129
  Serious: Yes (Hospitalization)
  Sender: FDA-Public Use
  Company Number: FR-GLAXOSMITHKLINE-B0322738A

PATIENT
  Age: 43 Year
  Sex: Male

DRUGS (6)
  1. EPIVIR [Suspect]
     Indication: HIV INFECTION
     Dosage: 300MG PER DAY
     Route: 048
     Dates: start: 20010326
  2. ZIAGEN [Suspect]
     Indication: HIV INFECTION
     Dosage: 600MG PER DAY
     Route: 048
     Dates: start: 20010326
  3. DEPAKENE [Suspect]
     Dosage: 2.5G PER DAY
     Route: 048
  4. LOXAPAC [Suspect]
     Dosage: 25MG PER DAY
     Route: 048
  5. ATAZANAVIR [Suspect]
     Indication: HIV INFECTION
     Dosage: 400MG PER DAY
     Route: 048
     Dates: start: 20030618
  6. EFFEXOR [Suspect]
     Dosage: 75MG PER DAY
     Route: 048

REACTIONS (3)
  - COGNITIVE DISORDER [None]
  - DISORIENTATION [None]
  - FALL [None]
